FAERS Safety Report 5563382-3 (Version None)
Quarter: 2007Q4

REPORT INFORMATION
  Report Type: 
  Country: None (occurrence: None)
  Receive Date: 20071217
  Receipt Date: 20071210
  Transmission Date: 20080405
  Serious: No
  Sender: FDA-Public Use
  Company Number: US-ASTRAZENECA-2006UW09617

PATIENT
  Age: 83 Year
  Sex: Female
  Weight: 61.2 kg

DRUGS (6)
  1. CRESTOR [Suspect]
     Indication: BLOOD CHOLESTEROL INCREASED
     Route: 048
     Dates: start: 20060501
  2. CRESTOR [Suspect]
     Route: 048
     Dates: start: 20070301
  3. ATENOLOL [Concomitant]
  4. ASPIRIN [Concomitant]
  5. HYDROCHLOROTHIAZIDE [Concomitant]
  6. XANAX [Concomitant]

REACTIONS (6)
  - ARTHRALGIA [None]
  - BACK PAIN [None]
  - DECREASED APPETITE [None]
  - DIARRHOEA [None]
  - MUSCLE SPASMS [None]
  - WEIGHT INCREASED [None]
